FAERS Safety Report 26120650 (Version 1)
Quarter: 2025Q4

REPORT INFORMATION
  Report Type: Spontaneous
  Country: EU (occurrence: EU)
  Receive Date: 20251204
  Receipt Date: 20251204
  Transmission Date: 20260117
  Serious: Yes (Other)
  Sender: AUROBINDO
  Company Number: EU-LRB-01096128

PATIENT
  Age: 80 Year
  Sex: Female
  Weight: 66 kg

DRUGS (4)
  1. ALENDRONIC ACID [Suspect]
     Active Substance: ALENDRONIC ACID
     Indication: Osteoporosis
     Dosage: 1X PWEEK
     Dates: start: 20251004, end: 20251018
  2. BISOPROLOL TABLET   2,5MG / Brand name not specified [Concomitant]
     Indication: Product used for unknown indication
     Dosage: 2.5 MILLIGRAM
  3. ROSUVASTATINE TABLET  5MG / Brand name not specified [Concomitant]
     Indication: Product used for unknown indication
     Dosage: 5 MILLIGRAM
  4. XARELTO [Concomitant]
     Active Substance: RIVAROXABAN
     Indication: Product used for unknown indication
     Dosage: 20 MILLIGRAM

REACTIONS (1)
  - Arrhythmia [Recovering/Resolving]
